FAERS Safety Report 8891450 (Version 2)
Quarter: 2012Q4

REPORT INFORMATION
  Report Type: Spontaneous
  Country: US (occurrence: None)
  Receive Date: 20121031
  Receipt Date: 20121123
  Transmission Date: 20130627
  Serious: Yes (Death, Hospitalization)
  Sender: FDA-Public Use
  Company Number: 2011SGN00378

PATIENT
  Age: 54 Year
  Sex: Female

DRUGS (3)
  1. ADCETRIS (BRENTUXIMAB VEDOTIN) INJECTION [Suspect]
     Indication: GVHD
     Dosage: 1.8 mg/kg, q21d, Intravenous
     Route: 042
     Dates: start: 20111108
  2. PREDNISONE [Concomitant]
  3. TACROLIMUS (TACROLIMUS) [Concomitant]

REACTIONS (2)
  - Graft versus host disease [None]
  - Off label use [None]
